FAERS Safety Report 16921888 (Version 3)
Quarter: 2020Q1

REPORT INFORMATION
  Report Type: Spontaneous
  Country: US (occurrence: US)
  Receive Date: 20191015
  Receipt Date: 20200218
  Transmission Date: 20200409
  Serious: Yes (Hospitalization)
  Sender: FDA-Public Use
  Company Number: NVSC2019US000779

PATIENT
  Age: 46 Year
  Sex: Male
  Weight: 131 kg

DRUGS (1)
  1. COSENTYX [Suspect]
     Active Substance: SECUKINUMAB
     Indication: PSORIATIC ARTHROPATHY
     Dosage: 150 MG, QMO
     Route: 058
     Dates: start: 201903, end: 201905

REACTIONS (5)
  - Diarrhoea [Unknown]
  - Abdominal pain [Unknown]
  - Colitis ulcerative [Recovered/Resolved with Sequelae]
  - Inflammatory bowel disease [Unknown]
  - Large intestine perforation [Unknown]

NARRATIVE: CASE EVENT DATE: 201905
